FAERS Safety Report 6709755-4 (Version None)
Quarter: 2010Q2

REPORT INFORMATION
  Report Type: 
  Country: None (occurrence: None)
  Receive Date: 20100504
  Receipt Date: 20100423
  Transmission Date: 20101027
  Serious: Yes (Other)
  Sender: FDA-Public Use
  Company Number: CA-JNJFOC-20100407074

PATIENT
  Sex: Female
  Weight: 107 kg

DRUGS (4)
  1. REMICADE [Suspect]
     Indication: CROHN'S DISEASE
     Route: 042
  2. IMURAN [Concomitant]
     Route: 048
  3. SYNTHROID [Concomitant]
  4. METAMUCIL-2 [Concomitant]
     Indication: DIARRHOEA

REACTIONS (2)
  - DIARRHOEA [None]
  - THERAPEUTIC RESPONSE DECREASED [None]
